FAERS Safety Report 6681864-8 (Version None)
Quarter: 2010Q2

REPORT INFORMATION
  Report Type: 
  Country: None (occurrence: None)
  Receive Date: 20100414
  Receipt Date: 20100406
  Transmission Date: 20101027
  Serious: Yes (Other)
  Sender: FDA-Public Use
  Company Number: DE-ABBOTT-10P-062-0636679-00

PATIENT
  Sex: Female
  Weight: 55 kg

DRUGS (8)
  1. ZEMPLAR [Suspect]
     Indication: HYPERPARATHYROIDISM SECONDARY
     Dates: start: 20080801, end: 20080903
  2. ZEMPLAR [Suspect]
     Dates: start: 20080903
  3. CINACALCET HYDROCHLORIDE [Concomitant]
     Indication: HYPERPARATHYROIDISM SECONDARY
  4. RENAGEL [Concomitant]
     Indication: DRUG USE FOR UNKNOWN INDICATION
     Dosage: SIX PER DAY
  5. NEO RECORMON [Concomitant]
     Indication: ANAEMIA
  6. TILIDIN [Concomitant]
     Indication: PAIN
     Route: 048
  7. DIPYRONE TAB [Concomitant]
     Indication: DRUG USE FOR UNKNOWN INDICATION
  8. PREGABALIN [Concomitant]
     Indication: DRUG USE FOR UNKNOWN INDICATION

REACTIONS (2)
  - HYPERPARATHYROIDISM TERTIARY [None]
  - PERIPHERAL ARTERIAL OCCLUSIVE DISEASE [None]
